FAERS Safety Report 16885074 (Version 1)
Quarter: 2019Q4

REPORT INFORMATION
  Report Type: Spontaneous
  Country: US (occurrence: US)
  Receive Date: 20190808
  Receipt Date: 20190808
  Transmission Date: 20200122
  Serious: No
  Sender: FDA-Public Use
  Company Number: None

PATIENT
  Age: 78 Year
  Sex: Male
  Weight: 53 kg

DRUGS (1)
  1. CEFEPIME [Suspect]
     Active Substance: CEFEPIME HYDROCHLORIDE
     Indication: LOWER RESPIRATORY TRACT INFECTION
     Route: 042
     Dates: start: 20190415, end: 20190415

REACTIONS (3)
  - Mental status changes [None]
  - Status epilepticus [None]
  - Neurotoxicity [None]

NARRATIVE: CASE EVENT DATE: 20190415
